FAERS Safety Report 20356843 (Version 1)
Quarter: 2022Q1

REPORT INFORMATION
  Report Type: Spontaneous
  Country: US (occurrence: None)
  Receive Date: 20220120
  Receipt Date: 20220120
  Transmission Date: 20220424
  Serious: Yes (Other)
  Sender: FDA-Public Use
  Company Number: None

PATIENT
  Age: 75 Year
  Sex: Female

DRUGS (7)
  1. REPATHA [Suspect]
     Active Substance: EVOLOCUMAB
     Indication: Hyperlipidaemia
     Dosage: FREQUENCY : EVERY OTHER WEEK;?
     Route: 058
     Dates: start: 20220117, end: 20220120
  2. AMLODIPINE BESYLATE 10 MG TABLETS [Concomitant]
  3. LISINOPRIL [Concomitant]
     Active Substance: LISINOPRIL
  4. METOPROLOL SUCCINATE [Concomitant]
     Active Substance: METOPROLOL SUCCINATE
  5. WARFARIN SOD 10MG (TEN MG) TB WHITE [Concomitant]
  6. ATORVASTATIN [Concomitant]
     Active Substance: ATORVASTATIN
  7. LEVOTHYROXINE 0.025MG (25MCG) TAB [Concomitant]

REACTIONS (4)
  - Tongue discomfort [None]
  - Throat irritation [None]
  - Swollen tongue [None]
  - Tongue erythema [None]

NARRATIVE: CASE EVENT DATE: 20220118
